FAERS Safety Report 17056283 (Version 2)
Quarter: 2019Q4

REPORT INFORMATION
  Report Type: Report from Study
  Country: AU (occurrence: AU)
  Receive Date: 20191121
  Receipt Date: 20191224
  Transmission Date: 20200122
  Serious: Yes (Death, Hospitalization, Other)
  Sender: FDA-Public Use
  Company Number: AU-AMGEN-AUSSL2019192229

PATIENT
  Age: 89 Year
  Sex: Female

DRUGS (1)
  1. ARANESP [Suspect]
     Active Substance: DARBEPOETIN ALFA
     Indication: CHRONIC KIDNEY DISEASE
     Dosage: UNK UNK, QMO
     Route: 065

REACTIONS (8)
  - Diarrhoea [Unknown]
  - End stage renal disease [Fatal]
  - Skin laceration [Unknown]
  - Administration site bruise [Unknown]
  - Oedema peripheral [Unknown]
  - Cellulitis [Unknown]
  - Hypophagia [Unknown]
  - Lethargy [Unknown]

NARRATIVE: CASE EVENT DATE: 2019
